FAERS Safety Report 7932188-X (Version None)
Quarter: 2011Q4

REPORT INFORMATION
  Report Type: 
  Country: None (occurrence: None)
  Receive Date: 20111121
  Receipt Date: 20111115
  Transmission Date: 20120403
  Serious: Yes (Hospitalization, Other)
  Sender: FDA-Public Use
  Company Number: PHHO2011CN019091

PATIENT
  Sex: Male
  Weight: 65.8 kg

DRUGS (9)
  1. RAMIPRIL [Suspect]
  2. ATORVASTATIN [Concomitant]
     Indication: HYPERLIPIDAEMIA
     Dosage: 20 MG, QD
     Route: 048
     Dates: start: 20110823
  3. ENALAPRIL MALEATE [Suspect]
     Indication: CARDIAC FAILURE CHRONIC
     Dosage: SCREENING PHASE
  4. BLINDED NO TREATMENT RECEIVED [Suspect]
     Indication: CARDIAC FAILURE CHRONIC
     Dosage: SCREENING PHASE
  5. INSULIN [Concomitant]
     Indication: DIABETES MELLITUS
     Dosage: 25 IU, UNK
     Dates: start: 20110429
  6. ISOSORBIDE MONONITRATE [Suspect]
  7. ASPIRIN [Concomitant]
     Indication: PLATELET AGGREGATION
     Dosage: 100 MG, QD
     Route: 048
     Dates: start: 20110823
  8. METOPROLOL TARTRATE [Suspect]
  9. VALSARTAN [Suspect]
     Indication: CARDIAC FAILURE CHRONIC
     Dosage: SCREENING PHASE

REACTIONS (3)
  - CARDIAC FAILURE [None]
  - CORONARY ARTERY DISEASE [None]
  - ANGINA UNSTABLE [None]
